FAERS Safety Report 23513738 (Version 6)
Quarter: 2024Q3

REPORT INFORMATION
  Report Type: Spontaneous
  Country: US (occurrence: US)
  Receive Date: 20240212
  Receipt Date: 20240910
  Transmission Date: 20241017
  Serious: No
  Sender: CALLIDITAS THERAPEUTICS
  Company Number: US-Calliditas-2024CAL00163

PATIENT
  Age: 79 Year
  Sex: Male

DRUGS (2)
  1. TARPEYO [Suspect]
     Active Substance: BUDESONIDE
     Indication: IgA nephropathy
     Dosage: 16 MG (4 MG CAPSULES) ONCE DAILY
     Route: 048
     Dates: start: 20231116
  2. FARXIGA [Suspect]
     Active Substance: DAPAGLIFLOZIN PROPANEDIOL
     Indication: Product used for unknown indication

REACTIONS (4)
  - Pruritus [Not Recovered/Not Resolved]
  - Dry skin [Not Recovered/Not Resolved]
  - Hyperhidrosis [Unknown]
  - Weight decreased [Unknown]

NARRATIVE: CASE EVENT DATE: 20240126
